FAERS Safety Report 4339443-3 (Version None)
Quarter: 2004Q2

REPORT INFORMATION
  Report Type: 
  Country: None (occurrence: None)
  Receive Date: 20040415
  Receipt Date: 20040310
  Transmission Date: 20050107
  Serious: Yes (Other)
  Sender: FDA-Public Use
  Company Number: FR-GLAXOSMITHKLINE-B0326489A

PATIENT
  Age: 83 Year
  Sex: Female
  Weight: 65 kg

DRUGS (11)
  1. FLUTICASONE PROPIONATE [Suspect]
     Dosage: 100MCG TWICE PER DAY
     Route: 045
     Dates: start: 20030901, end: 20031101
  2. RHINOCORT [Suspect]
     Dosage: 2PUFF PER DAY
     Route: 045
     Dates: start: 20040101, end: 20040301
  3. ZYRTEC [Concomitant]
     Dosage: 1TAB PER DAY
     Route: 048
     Dates: start: 20030901, end: 20030101
  4. AERIUS [Concomitant]
     Route: 048
     Dates: start: 20030101, end: 20040301
  5. TAREG [Concomitant]
     Dosage: 40MG PER DAY
     Route: 048
  6. TANAKAN [Concomitant]
     Dosage: 3TAB PER DAY
     Route: 048
  7. TIMOPTIC [Concomitant]
     Indication: GLAUCOMA
     Route: 047
  8. PROPINE [Concomitant]
     Indication: GLAUCOMA
     Route: 047
  9. PROPOFOL [Concomitant]
     Route: 048
  10. ACETAMINOPHEN [Concomitant]
     Dosage: 3TAB PER DAY
     Route: 048
  11. TOCO [Concomitant]
     Dosage: 1TAB PER DAY
     Route: 048

REACTIONS (3)
  - ANAEMIA [None]
  - FATIGUE [None]
  - GASTRIC HAEMORRHAGE [None]
